FAERS Safety Report 4778906-3 (Version None)
Quarter: 2005Q3

REPORT INFORMATION
  Report Type: 
  Country: None (occurrence: None)
  Receive Date: 20050922
  Receipt Date: 20050914
  Transmission Date: 20060218
  Serious: Yes (Death, Hospitalization)
  Sender: FDA-Public Use
  Company Number: 163-20785-05050264

PATIENT
  Age: 66 Year
  Sex: Male

DRUGS (2)
  1. THALOMID [Suspect]
     Indication: RENAL CELL CARCINOMA STAGE UNSPECIFIED
     Dosage: 100 MG, 50 MG CAPSULES, 2 CAPSULES TWICE A DAY, ORAL
     Route: 048
     Dates: start: 20050503, end: 20050101
  2. ZOMETA [Concomitant]

REACTIONS (3)
  - DISEASE PROGRESSION [None]
  - RESPIRATORY FAILURE [None]
  - SPINAL CORD COMPRESSION [None]
